FAERS Safety Report 5061032-6 (Version None)
Quarter: 2006Q3

REPORT INFORMATION
  Report Type: 
  Country: None (occurrence: None)
  Receive Date: 20060720
  Receipt Date: 20060703
  Transmission Date: 20061208
  Serious: Yes (Death)
  Sender: FDA-Public Use
  Company Number: 224704

PATIENT
  Age: 71 Year
  Sex: Male
  Weight: 52 kg

DRUGS (11)
  1. BEVACIZUMAB OR PLACEBO (BEVACIZUMAB) PWDR + SOLVENT, INFUSION SOLN, 10 [Suspect]
     Indication: NON-SMALL CELL LUNG CANCER
     Dosage: 15 MG/KG, Q3W, INTRAVENOUS
     Route: 042
     Dates: start: 20060131
  2. \BEVACIZUMAB OR PLACEBO (BEVACIZUMAB) PWDR + SOLVENT, INFUSION SOLN, 1 [Suspect]
  3. CISPLATIN [Suspect]
     Indication: NON-SMALL CELL LUNG CANCER
     Dosage: 80 MG/M2, Q3W, INTRAVENOUS
     Route: 042
     Dates: start: 20060131
  4. GEMCITABINE [Suspect]
     Indication: NON-SMALL CELL LUNG CANCER
     Dosage: 1250 MG, Q3W,  INTRAVENOUS
     Route: 042
     Dates: start: 20060131
  5. SALMETEROL (SALMETEROL) [Concomitant]
  6. OMEPRAZOLE [Concomitant]
  7. FORTECORTIN (DEXAMETHASONE) [Concomitant]
  8. ACETAMINOPHEN [Concomitant]
  9. BISOPROLOL FUMARATE [Concomitant]
  10. CODEINA (CODEINE) [Concomitant]
  11. LORAZEPAM [Concomitant]

REACTIONS (1)
  - DISEASE PROGRESSION [None]
